FAERS Safety Report 5233151-2 (Version None)
Quarter: 2007Q1

REPORT INFORMATION
  Report Type: 
  Country: None (occurrence: None)
  Receive Date: 20070207
  Receipt Date: 20070126
  Transmission Date: 20070707
  Serious: Yes (Other)
  Sender: FDA-Public Use
  Company Number: US-PFIZER INC-2007007538

PATIENT
  Sex: Female
  Weight: 78 kg

DRUGS (6)
  1. CHANTIX [Suspect]
     Indication: SMOKING CESSATION THERAPY
     Dosage: FREQ:TWICE A DAY
     Dates: start: 20060928, end: 20060101
  2. INDERAL [Concomitant]
  3. LORTAB [Concomitant]
  4. GABAPENTIN [Concomitant]
  5. HYDROCHLOROTHIAZIDE [Concomitant]
  6. ATENOLOL [Concomitant]

REACTIONS (3)
  - BEDRIDDEN [None]
  - NAUSEA [None]
  - VOMITING [None]
